FAERS Safety Report 6206489-X (Version None)
Quarter: 2009Q2

REPORT INFORMATION
  Report Type: 
  Country: None (occurrence: None)
  Receive Date: 20090528
  Receipt Date: 20090513
  Transmission Date: 20091009
  Serious: Yes (Other)
  Sender: FDA-Public Use
  Company Number: US-AMGEN-US347067

PATIENT
  Sex: Male
  Weight: 3.1 kg

DRUGS (5)
  1. ENBREL [Suspect]
     Indication: RHEUMATOID ARTHRITIS
     Route: 064
     Dates: start: 20040515
  2. PREDNISONE [Concomitant]
     Route: 064
     Dates: start: 20031001
  3. ASPIRIN [Concomitant]
     Route: 064
     Dates: start: 20080301
  4. VITAMIN TAB [Concomitant]
     Route: 064
     Dates: start: 20030301
  5. CAFFEINE [Concomitant]
     Route: 064

REACTIONS (4)
  - CAESAREAN SECTION [None]
  - HYDROCELE [None]
  - HYDRONEPHROSIS [None]
  - MATERNAL DRUGS AFFECTING FOETUS [None]
